FAERS Safety Report 9258740 (Version 1)
Quarter: 2013Q2

REPORT INFORMATION
  Report Type: Spontaneous
  Country: GB (occurrence: GB)
  Receive Date: 20130426
  Receipt Date: 20130426
  Transmission Date: 20140414
  Serious: Yes (Life-Threatening)
  Sender: FDA-Public Use
  Company Number: GB-TEVA-399276ISR

PATIENT
  Age: 69 Year
  Sex: Female
  Weight: 74 kg

DRUGS (7)
  1. WARFARIN [Suspect]
     Indication: PULMONARY EMBOLISM
     Route: 048
     Dates: start: 20130402, end: 20130403
  2. ATENOLOL [Concomitant]
     Indication: HYPERTENSION
     Dosage: LONG STANDING
     Route: 048
  3. RAMIPRIL [Concomitant]
     Indication: HYPERTENSION
     Dosage: LONG STANDING
     Route: 048
  4. PARACETAMOL [Concomitant]
     Indication: RHEUMATOID ARTHRITIS
     Dosage: 4 GRAM DAILY; LONG STANDING
     Route: 048
  5. DOXYCYCLINE [Concomitant]
     Indication: UPPER RESPIRATORY TRACT INFECTION
     Dosage: 100 MILLIGRAM DAILY;
     Route: 048
     Dates: start: 20130312, end: 20130319
  6. HUMIRA [Concomitant]
     Route: 058
  7. SALAZOPYRIN [Concomitant]
     Dosage: 3 GRAM DAILY;

REACTIONS (1)
  - Swollen tongue [Recovered/Resolved]
